FAERS Safety Report 6298919-2 (Version None)
Quarter: 2009Q3

REPORT INFORMATION
  Report Type: 
  Country: None (occurrence: None)
  Receive Date: 20090806
  Receipt Date: 20090728
  Transmission Date: 20100115
  Serious: Yes (Death, Hospitalization)
  Sender: FDA-Public Use
  Company Number: AU-PFIZER INC-2009157580

PATIENT
  Age: 79 Year

DRUGS (11)
  1. SUTENT [Suspect]
     Indication: RENAL CELL CARCINOMA
     Dosage: 25 MG, 1X/DAY
     Route: 048
     Dates: start: 20081211, end: 20081231
  2. PARIET [Concomitant]
     Indication: OESOPHAGITIS
     Dosage: 20 MG, 1X/DAY
     Route: 048
  3. GABAPENTIN [Concomitant]
     Indication: NEURALGIA
     Dosage: 900 MG, 3X/DAY
     Route: 048
  4. NIFEDIPINE [Concomitant]
     Indication: HYPERTENSION
     Dosage: 20 MG, 1X/DAY
     Route: 048
  5. SERETIDE [Concomitant]
     Indication: ASTHMA
     Dosage: 250UG/25UG, 2 PUFFS TWICE DAILY
     Route: 055
  6. SERETIDE [Concomitant]
     Indication: CHRONIC OBSTRUCTIVE PULMONARY DISEASE
  7. METAMUCIL-2 [Concomitant]
     Indication: DIARRHOEA
     Dosage: 1 TEASPOONFUL 2X/DAY
     Route: 048
  8. OXYCONTIN [Concomitant]
     Indication: PAIN
     Dosage: 5 MG, 2X/DAY
     Route: 048
  9. ENOXAPARIN SODIUM [Concomitant]
     Indication: DEEP VEIN THROMBOSIS
     Dosage: 50 MG, 2X/DAY
     Route: 058
  10. ENOXAPARIN SODIUM [Concomitant]
     Indication: PULMONARY EMBOLISM
  11. KEFLEX [Concomitant]
     Indication: INFECTION
     Dosage: 500 MG, 4X/DAY
     Route: 048

REACTIONS (2)
  - DISEASE PROGRESSION [None]
  - RENAL CELL CARCINOMA [None]
